FAERS Safety Report 23609255 (Version 1)
Quarter: 2024Q1

REPORT INFORMATION
  Report Type: Spontaneous
  Country: US (occurrence: US)
  Receive Date: 20240308
  Receipt Date: 20240308
  Transmission Date: 20240410
  Serious: Yes (Other)
  Sender: FDA-Public Use
  Company Number: US-BAUSCHBL-2024BNL002630

PATIENT
  Age: 79 Year
  Sex: Female

DRUGS (9)
  1. TIMOLOL [Suspect]
     Active Substance: TIMOLOL
     Indication: Glaucoma
     Dosage: IN BOTH EYES
     Route: 061
  2. TIMOLOL [Suspect]
     Active Substance: TIMOLOL
  3. DORZOLAMIDE [Suspect]
     Active Substance: DORZOLAMIDE
     Indication: Glaucoma
     Dosage: IN BOTH EYES
     Route: 061
  4. BRIMONIDINE [Suspect]
     Active Substance: BRIMONIDINE TARTRATE
     Indication: Glaucoma
     Dosage: IN BOTH EYES
     Route: 061
  5. ARTIFICIAL TEARS (PROPYLENE GLYCOL) [Suspect]
     Active Substance: PROPYLENE GLYCOL
     Indication: Neurotrophic keratopathy
     Dosage: PLUS LUBRICANT OINTMENT
     Route: 065
  6. TRAVOPROST [Suspect]
     Active Substance: TRAVOPROST
     Indication: Glaucoma
     Dosage: IN BOTH EYES
     Route: 061
  7. POLYMYXIN B SULFATE AND TRIMETHOPRIM [Suspect]
     Active Substance: POLYMYXIN B SULFATE\TRIMETHOPRIM SULFATE
     Indication: Neurotrophic keratopathy
     Route: 061
  8. BEVACIZUMAB [Concomitant]
     Active Substance: BEVACIZUMAB
     Indication: Product used for unknown indication
     Dosage: INTRAVITREAL INJECTIONS IN BOTH EYES
  9. PREDNISOLONE [Concomitant]
     Active Substance: PREDNISOLONE
     Indication: Postoperative care
     Dosage: WEEKLY TAPER OVER THE FIRST MONTH

REACTIONS (1)
  - Therapy non-responder [Unknown]
